FAERS Safety Report 5794985-9 (Version None)
Quarter: 2008Q2

REPORT INFORMATION
  Report Type: 
  Country: None (occurrence: None)
  Receive Date: 20080630
  Receipt Date: 20080624
  Transmission Date: 20081010
  Serious: Yes (Death)
  Sender: FDA-Public Use
  Company Number: US-PURDUE-USA_2008_0033013

PATIENT
  Age: 17 Year
  Sex: Male
  Weight: 77 kg

DRUGS (2)
  1. OXYCONTIN [Suspect]
     Indication: DRUG ABUSE
     Dosage: UNK MG, UNK
     Route: 048
  2. HYDROMORPHONE HCL [Suspect]
     Indication: DRUG ABUSE
     Dosage: UNK MG, UNK
     Route: 048

REACTIONS (3)
  - ACCIDENTAL OVERDOSE [None]
  - LEFT VENTRICULAR HYPERTROPHY [None]
  - LOSS OF CONSCIOUSNESS [None]
